FAERS Safety Report 5031975-8 (Version None)
Quarter: 2006Q2

REPORT INFORMATION
  Report Type: 
  Country: None (occurrence: None)
  Receive Date: 20060614
  Receipt Date: 20060530
  Transmission Date: 20061013
  Serious: Yes (Hospitalization)
  Sender: FDA-Public Use
  Company Number: 2006-143276-NL

PATIENT
  Age: 74 Year
  Sex: Male
  Weight: 80 kg

DRUGS (3)
  1. TICE BCG [Suspect]
     Indication: BLADDER CANCER
     Dosage: CFU INTRAVESICAL
     Route: 043
     Dates: start: 20050101
  2. LIPITOR [Concomitant]
  3. ECOTRIN [Concomitant]

REACTIONS (5)
  - ABDOMINAL PAIN [None]
  - ABSCESS DRAINAGE [None]
  - AORTIC ANEURYSM [None]
  - PSOAS ABSCESS [None]
  - SURGICAL PROCEDURE REPEATED [None]
